FAERS Safety Report 16208019 (Version 1)
Quarter: 2019Q2

REPORT INFORMATION
  Report Type: Report from Study
  Country: CH (occurrence: CH)
  Receive Date: 20190417
  Receipt Date: 20190417
  Transmission Date: 20190711
  Serious: Yes (Other)
  Sender: FDA-Public Use
  Company Number: CH-ROCHE-2302573

PATIENT
  Age: 58 Year

DRUGS (2)
  1. RITUXIMAB. [Suspect]
     Active Substance: RITUXIMAB
     Indication: B-CELL LYMPHOMA
     Dosage: ON 20/FEB/2017, THE PATIENT RECEIVED THE LAST DOSE OF RITUXIMAB PRIOR TO EVENT.
     Route: 042
     Dates: start: 20161010
  2. BLINDED IBRUTINIB OR PLACEBO [Suspect]
     Active Substance: IBRUTINIB
     Indication: B-CELL LYMPHOMA
     Dosage: ON 27/MAR/2017, THE PATIENT RECEIVED THE LAST DOSE OF IBRUTINIB PRIOR TO EVENT.
     Route: 048
     Dates: start: 20160926

REACTIONS (1)
  - Lymphoma transformation [Recovered/Resolved with Sequelae]

NARRATIVE: CASE EVENT DATE: 20181011
